FAERS Safety Report 17392049 (Version 1)
Quarter: 2020Q1

REPORT INFORMATION
  Report Type: Spontaneous
  Country: SK (occurrence: SK)
  Receive Date: 20200207
  Receipt Date: 20200207
  Transmission Date: 20200409
  Serious: Yes (Other)
  Sender: FDA-Public Use
  Company Number: SK-SA-2020SA029502

PATIENT
  Age: 61 Year
  Sex: Female

DRUGS (6)
  1. STILNOX [Suspect]
     Active Substance: ZOLPIDEM TARTRATE
     Indication: INSOMNIA
     Dosage: 0-0-0-1
     Route: 048
  2. BETALOC ZOK [Concomitant]
     Active Substance: METOPROLOL SUCCINATE
     Indication: HYPERTENSION
     Dosage: LONG-TERM 1-0-1
     Route: 048
  3. SEROQUEL XR [Concomitant]
     Active Substance: QUETIAPINE FUMARATE
     Indication: INSOMNIA
     Dosage: 0-0-1
     Route: 048
  4. TOLURA [Concomitant]
     Active Substance: TELMISARTAN
     Dosage: LONG-TERM 0-0-1
     Route: 048
  5. PREGABALIN. [Concomitant]
     Active Substance: PREGABALIN
     Dosage: 75 MG
     Route: 048
  6. OLANZAPINE. [Concomitant]
     Active Substance: OLANZAPINE
     Indication: INSOMNIA
     Dosage: 0-0-1
     Route: 048

REACTIONS (6)
  - Memory impairment [Unknown]
  - Deafness unilateral [Unknown]
  - Insomnia [Unknown]
  - Vision blurred [Unknown]
  - Emotional poverty [Unknown]
  - Dyspnoea [Unknown]
